FAERS Safety Report 4652209-X (Version None)
Quarter: 2005Q2

REPORT INFORMATION
  Report Type: 
  Country: None (occurrence: None)
  Receive Date: 20050502
  Receipt Date: 20050427
  Transmission Date: 20051028
  Serious: No
  Sender: FDA-Public Use
  Company Number: 2005UW00816

PATIENT
  Age: 74 Year
  Sex: Male
  Weight: 80.285 kg

DRUGS (6)
  1. CRESTOR [Suspect]
     Indication: BLOOD CHOLESTEROL INCREASED
     Dosage: 10 MG PO
     Route: 048
     Dates: start: 20040301, end: 20041120
  2. AMARYL [Concomitant]
  3. GLUCOPHAGE [Concomitant]
  4. IBUPROFEN [Concomitant]
  5. SKELAXIN [Concomitant]
  6. KEFLEX [Concomitant]

REACTIONS (9)
  - ACTIVITIES OF DAILY LIVING IMPAIRED [None]
  - ARTHRALGIA [None]
  - BALANCE DISORDER [None]
  - DECREASED ACTIVITY [None]
  - DIFFICULTY IN WALKING [None]
  - GAIT DISTURBANCE [None]
  - MUSCLE SPASMS [None]
  - NERVE COMPRESSION [None]
  - PAIN IN EXTREMITY [None]
